FAERS Safety Report 14822816 (Version 6)
Quarter: 2020Q4

REPORT INFORMATION
  Report Type: Spontaneous
  Country: US (occurrence: US)
  Receive Date: 20180427
  Receipt Date: 20201216
  Transmission Date: 20210113
  Serious: No
  Sender: FDA-Public Use
  Company Number: US-PFIZER INC-2018172584

PATIENT
  Age: 67 Year
  Sex: Female

DRUGS (1)
  1. LYRICA [Suspect]
     Active Substance: PREGABALIN
     Indication: NEUROPATHY PERIPHERAL
     Dosage: 300 MG, AS NEEDED BID (TWICE A DAY)
     Route: 048

REACTIONS (3)
  - Gait inability [Unknown]
  - Insomnia [Unknown]
  - Drug withdrawal syndrome [Unknown]
